FAERS Safety Report 15639689 (Version 1)
Quarter: 2018Q4

REPORT INFORMATION
  Report Type: Spontaneous
  Country: US (occurrence: US)
  Receive Date: 20181120
  Receipt Date: 20181120
  Transmission Date: 20190205
  Serious: Yes (Hospitalization, Other)
  Sender: FDA-Public Use
  Company Number: US-ABBVIE-18S-163-2552713-00

PATIENT
  Age: 56 Year
  Sex: Male

DRUGS (6)
  1. LUPRON [Suspect]
     Active Substance: LEUPROLIDE ACETATE
     Indication: PRODUCT USED FOR UNKNOWN INDICATION
     Route: 065
     Dates: start: 2010
  2. ENZALUTAMIDE [Concomitant]
     Active Substance: ENZALUTAMIDE
     Indication: PRODUCT USED FOR UNKNOWN INDICATION
     Dates: start: 20151201
  3. BICALUTAMIDE. [Suspect]
     Active Substance: BICALUTAMIDE
     Indication: PROSTATE CANCER
     Route: 048
     Dates: end: 2015
  4. DOCETAXEL. [Suspect]
     Active Substance: DOCETAXEL
     Indication: PRODUCT USED FOR UNKNOWN INDICATION
     Dosage: HALF DOSE
     Route: 065
     Dates: start: 20180828
  5. ABIRATERONE. [Suspect]
     Active Substance: ABIRATERONE ACETATE
     Indication: PRODUCT USED FOR UNKNOWN INDICATION
     Route: 065
     Dates: start: 20171128
  6. ABIRATERONE. [Suspect]
     Active Substance: ABIRATERONE ACETATE
     Route: 065
     Dates: start: 2018

REACTIONS (13)
  - Spinal cord compression [Unknown]
  - Gait inability [Not Recovered/Not Resolved]
  - Lymphadenopathy [Unknown]
  - Muscular weakness [Unknown]
  - Hypoaesthesia [Unknown]
  - Abdominal lymphadenopathy [Unknown]
  - Sensory loss [Unknown]
  - Pelvic mass [Unknown]
  - Gait disturbance [Unknown]
  - Paraesthesia [Not Recovered/Not Resolved]
  - Prostatic specific antigen increased [Unknown]
  - Stomatitis [Unknown]
  - Chest pain [Unknown]

NARRATIVE: CASE EVENT DATE: 20120615
